FAERS Safety Report 9034637 (Version 1)
Quarter: 2013Q1

REPORT INFORMATION
  Report Type: Spontaneous
  Country: GB (occurrence: None)
  Receive Date: 20130115
  Receipt Date: 20130115
  Transmission Date: 20140127
  Serious: Yes (Other)
  Sender: FDA-Public Use
  Company Number: GB-DEXPHARM-20122110

PATIENT
  Age: 45 Year
  Sex: Female

DRUGS (1)
  1. OMEPRAZOLE [Suspect]
     Indication: REFLUX LARYNGITIS
     Dosage: DOSAGE TEXT:  POSSIBLY  40  MG  DAILY?FROM  22-NOV-2012
     Dates: start: 20121122

REACTIONS (2)
  - Depression [None]
  - Panic attack [None]
